FAERS Safety Report 8390158-4 (Version None)
Quarter: 2012Q2

REPORT INFORMATION
  Report Type: 
  Country: None (occurrence: None)
  Receive Date: 20120529
  Receipt Date: 20120523
  Transmission Date: 20120825
  Serious: Yes (Other)
  Sender: FDA-Public Use
  Company Number: US-PFIZER INC-2011266696

PATIENT
  Age: 70 Year
  Sex: Female

DRUGS (8)
  1. VIIBRYD [Suspect]
     Indication: DEPRESSION
     Dosage: 10 MG, 1X/DAY
     Route: 048
     Dates: start: 20110911, end: 20110917
  2. WELLBUTRIN SR [Suspect]
     Dosage: UNK
     Route: 048
     Dates: end: 20110912
  3. VIIBRYD [Suspect]
     Dosage: 40 MG, 1X/DAY
     Route: 048
     Dates: start: 20110925
  4. XANAX [Suspect]
     Dosage: 0.25 MG, 1X/DAY
     Route: 048
     Dates: start: 20111010
  5. RITALIN [Concomitant]
     Dosage: UNK
  6. VIIBRYD [Suspect]
     Dosage: 20 MG, 1X/DAY
     Route: 048
     Dates: start: 20110918, end: 20110924
  7. WELLBUTRIN SR [Suspect]
     Dosage: 150 MG, 1X/DAY
     Route: 048
  8. SYNTHROID [Concomitant]
     Indication: HYPOTHYROIDISM
     Dosage: UNK

REACTIONS (4)
  - TREMOR [None]
  - DYSKINESIA [None]
  - DIARRHOEA [None]
  - FATIGUE [None]
